FAERS Safety Report 9987986 (Version 1)
Quarter: 2014Q1

REPORT INFORMATION
  Report Type: Spontaneous
  Country: US (occurrence: US)
  Receive Date: 20140307
  Receipt Date: 20140307
  Transmission Date: 20141002
  Serious: Yes (Hospitalization)
  Sender: FDA-Public Use
  Company Number: US-B.I. PHARMACEUTICALS,INC./RIDGEFIELD-2014-BI-09469BP

PATIENT
  Age: 52 Year
  Sex: Male
  Weight: 95 kg

DRUGS (4)
  1. JENTADUETO [Suspect]
     Indication: TYPE 2 DIABETES MELLITUS
     Dosage: STRENGTH: 2.5 MG / 1000 MG; DAILY DOSE: 5 MG/2000 MG
     Route: 048
     Dates: start: 2013, end: 20140302
  2. HUMLOG 75/25 [Concomitant]
     Indication: DIABETES MELLITUS
     Dosage: 85 U
     Route: 058
  3. HUMLOG 75/25 [Concomitant]
     Dosage: 85 U
     Route: 058
  4. HUMLOG 75/25 [Concomitant]
     Dosage: 85 U
     Route: 058

REACTIONS (2)
  - Dyspnoea [Recovered/Resolved]
  - Vitamin B12 deficiency [Not Recovered/Not Resolved]
